FAERS Safety Report 12564475 (Version 1)
Quarter: 2016Q3

REPORT INFORMATION
  Report Type: Spontaneous
  Country: US (occurrence: None)
  Receive Date: 20160715
  Receipt Date: 20160715
  Transmission Date: 20161109
  Serious: No
  Sender: FDA-Public Use
  Company Number: None

PATIENT
  Age: 37 Year
  Sex: Female

DRUGS (1)
  1. JAKAFI [Suspect]
     Active Substance: RUXOLITINIB
     Indication: THROMBOCYTOSIS
     Route: 048
     Dates: start: 20160512

REACTIONS (2)
  - Vision blurred [None]
  - Abdominal discomfort [None]

NARRATIVE: CASE EVENT DATE: 20160524
